FAERS Safety Report 19932061 (Version 1)
Quarter: 2021Q4

REPORT INFORMATION
  Report Type: Spontaneous
  Country: CN (occurrence: CN)
  Receive Date: 20211007
  Receipt Date: 20211007
  Transmission Date: 20220303
  Serious: Yes (Other)
  Sender: FDA-Public Use
  Company Number: CN-BAXTER-2021BAX027704

PATIENT
  Age: 29 Year
  Sex: Male
  Weight: 60 kg

DRUGS (4)
  1. CYCLOPHOSPHAMIDE [Suspect]
     Active Substance: CYCLOPHOSPHAMIDE
     Indication: Acute lymphocytic leukaemia
     Dosage: CYCLOPHOSPHAMIDE 1.2G + NORMAL SALINE 100ML
     Route: 041
     Dates: start: 20190410, end: 20190410
  2. SODIUM CHLORIDE [Suspect]
     Active Substance: SODIUM CHLORIDE
     Indication: Medication dilution
     Dosage: CYCLOPHOSPHAMIDE 1.2G + NORMAL SALINE 100ML
     Route: 041
     Dates: start: 20190410, end: 20190410
  3. SODIUM CHLORIDE [Suspect]
     Active Substance: SODIUM CHLORIDE
     Dosage: EPIRUBICIN 80 MG + NORMAL SALINE 100ML
     Route: 041
     Dates: start: 20190410, end: 20190410
  4. EPIRUBICIN HYDROCHLORIDE [Suspect]
     Active Substance: EPIRUBICIN HYDROCHLORIDE
     Indication: Acute lymphocytic leukaemia
     Dosage: EPIRUBICIN 80 MG + NORMAL SALINE 100ML
     Route: 041
     Dates: start: 20190410, end: 20190410

REACTIONS (3)
  - Vomiting [Recovering/Resolving]
  - Nausea [Recovering/Resolving]
  - Decreased appetite [Recovering/Resolving]

NARRATIVE: CASE EVENT DATE: 20190410
